FAERS Safety Report 6402230-6 (Version None)
Quarter: 2009Q4

REPORT INFORMATION
  Report Type: 
  Country: None (occurrence: None)
  Receive Date: 20091015
  Receipt Date: 20091001
  Transmission Date: 20100525
  Serious: Yes (Other)
  Sender: FDA-Public Use
  Company Number: PHHY2009FI42896

PATIENT
  Sex: Female

DRUGS (1)
  1. DIOVAN COMP [Suspect]

REACTIONS (11)
  - ALOPECIA [None]
  - BLOOD POTASSIUM DECREASED [None]
  - CHEST PAIN [None]
  - FEELING ABNORMAL [None]
  - GASTROINTESTINAL DISORDER [None]
  - IRRITABILITY [None]
  - OROPHARYNGEAL PAIN [None]
  - OTORRHOEA [None]
  - PALPITATIONS [None]
  - STRESS [None]
  - URTICARIA [None]
